FAERS Safety Report 10102418 (Version 2)
Quarter: 2014Q2

REPORT INFORMATION
  Report Type: Other
  Country: US (occurrence: US)
  Receive Date: 20140424
  Receipt Date: 20140630
  Transmission Date: 20141212
  Serious: Yes (Hospitalization, Other)
  Sender: FDA-Public Use
  Company Number: US-GSKPPD-2014GSK000404

PATIENT
  Age: 55 Year
  Sex: Female
  Weight: 118.04 kg

DRUGS (7)
  1. AVANDIA [Suspect]
     Indication: DIABETES MELLITUS
     Route: 048
     Dates: start: 2002, end: 2009
  2. LOTENSIN [Concomitant]
  3. ZOCOR [Concomitant]
  4. PLAVIX [Concomitant]
  5. ASPIRIN [Concomitant]
  6. DILTIAZEM ER [Concomitant]
  7. ATENOLOL [Concomitant]

REACTIONS (3)
  - Coronary arterial stent insertion [Recovered/Resolved]
  - Myocardial infarction [None]
  - Coronary artery disease [Not Recovered/Not Resolved]
